FAERS Safety Report 5699758-3 (Version None)
Quarter: 2008Q2

REPORT INFORMATION
  Report Type: 
  Country: None (occurrence: None)
  Receive Date: 20080408
  Receipt Date: 20080408
  Transmission Date: 20081010
  Serious: Yes (Other)
  Sender: FDA-Public Use
  Company Number: None

PATIENT
  Age: 5 Year
  Sex: Male
  Weight: 18.1439 kg

DRUGS (3)
  1. STRATTERA [Suspect]
     Indication: ATTENTION DEFICIT/HYPERACTIVITY DISORDER
     Dosage: 1  QAM  PO
     Route: 048
     Dates: start: 20080227, end: 20080404
  2. SEROQUEL [Concomitant]
  3. TRAZODONE HCL [Concomitant]

REACTIONS (5)
  - HYPERSOMNIA [None]
  - LETHARGY [None]
  - PAIN [None]
  - SKIN CHAPPED [None]
  - SKIN DISCOLOURATION [None]
